FAERS Safety Report 9184857 (Version 1)
Quarter: 2013Q1

REPORT INFORMATION
  Report Type: Report from Study
  Country: CH (occurrence: CH)
  Receive Date: 20130325
  Receipt Date: 20130325
  Transmission Date: 20140127
  Serious: Yes (Other)
  Sender: FDA-Public Use
  Company Number: CH-ROCHE-1204244

PATIENT
  Sex: 0

DRUGS (4)
  1. CAPECITABINE [Suspect]
     Indication: RECTAL CANCER
     Dosage: DURING 5 WEEKS
     Route: 065
  2. CAPECITABINE [Suspect]
     Dosage: DURING 5 WEEKS
     Route: 065
  3. SORAFENIB [Suspect]
     Indication: RECTAL CANCER
     Dosage: DURING 5 WEEKS
     Route: 065
  4. SORAFENIB [Suspect]
     Dosage: DURING 5 WEEKS
     Route: 065

REACTIONS (9)
  - Palmar-plantar erythrodysaesthesia syndrome [Unknown]
  - Diarrhoea [Unknown]
  - Skin toxicity [Unknown]
  - Enteritis [Unknown]
  - Cystitis [Unknown]
  - Dermatitis [Unknown]
  - Myocardial ischaemia [Unknown]
  - Lymphopenia [Unknown]
  - Hypocalcaemia [Unknown]
